FAERS Safety Report 10097316 (Version 1)
Quarter: 2014Q2

REPORT INFORMATION
  Report Type: Report from Study
  Country: RU (occurrence: RU)
  Receive Date: 20140423
  Receipt Date: 20140423
  Transmission Date: 20141212
  Serious: Yes (Other)
  Sender: FDA-Public Use
  Company Number: PHHO2014RU005804

PATIENT
  Age: 46 Year
  Sex: Female
  Weight: 79.2 kg

DRUGS (11)
  1. SOM230 [Suspect]
     Indication: PITUITARY-DEPENDENT CUSHING^S SYNDROME
     Dosage: 0.6 UG, BID
     Route: 058
     Dates: start: 20131230, end: 20140107
  2. GLIMEPIRIDE [Concomitant]
     Indication: DIABETES MELLITUS
     Dosage: 3 MG, QD
     Route: 048
     Dates: start: 2008
  3. GLIMEPIRIDE [Concomitant]
     Dosage: 6 MG, QD
     Route: 048
     Dates: start: 20140103
  4. METFORMIN [Concomitant]
     Indication: DIABETES MELLITUS
     Dosage: 100 MG, QD
     Route: 048
     Dates: start: 2008
  5. LIRAGLUTIDE [Concomitant]
     Indication: DIABETES MELLITUS
     Dosage: 1.2 MG, QD
     Route: 058
     Dates: start: 201207
  6. LANTUS [Concomitant]
     Indication: DIABETES MELLITUS
     Dosage: 14 ML, QD
     Route: 058
     Dates: start: 20140104
  7. LANTUS [Concomitant]
     Dosage: 20 ML
     Route: 058
  8. ATORVASTATIN [Concomitant]
     Indication: DYSLIPIDAEMIA
     Dosage: 20 MG, QD
     Route: 048
     Dates: start: 2012
  9. BISOPROLOL [Concomitant]
     Indication: HYPERTENSION
     Dosage: 10 MG, QD
     Route: 048
     Dates: start: 2012
  10. ACETYLSALICYLIC ACID [Concomitant]
     Indication: PROPHYLAXIS
     Dosage: 100 MG, QD
     Route: 048
     Dates: start: 2012, end: 20140107
  11. CALCIUM CARBONATE W/COLECALCIFEROL [Concomitant]
     Indication: OSTEOPOROSIS
     Dosage: 1 DF, QD
     Route: 048
     Dates: start: 2012, end: 20140107

REACTIONS (1)
  - Hyperglycaemia [Recovering/Resolving]
